FAERS Safety Report 8091165-1 (Version None)
Quarter: 2012Q1

REPORT INFORMATION
  Report Type: 
  Country: None (occurrence: None)
  Receive Date: 20120129
  Receipt Date: 20110930
  Transmission Date: 20120608
  Serious: No
  Sender: FDA-Public Use
  Company Number: US-ABBOTT-11P-163-0859343-00

PATIENT

DRUGS (2)
  1. HUMIRA [Suspect]
     Indication: PRODUCT USED FOR UNKNOWN INDICATION
  2. SLEEPING PILL [Concomitant]
     Indication: INSOMNIA

REACTIONS (3)
  - MIGRAINE [None]
  - MYALGIA [None]
  - WEIGHT DECREASED [None]
